FAERS Safety Report 25913646 (Version 2)
Quarter: 2025Q4

REPORT INFORMATION
  Report Type: Spontaneous
  Country: US (occurrence: US)
  Receive Date: 20251013
  Receipt Date: 20251022
  Transmission Date: 20260117
  Serious: Yes (Other)
  Sender: PFIZER
  Company Number: US-PFIZER INC-PV202500120035

PATIENT
  Age: 74 Year
  Sex: Male

DRUGS (2)
  1. METHOTREXATE SODIUM [Suspect]
     Active Substance: METHOTREXATE SODIUM
     Indication: Arthritis
     Dosage: 20 MG, DAILY
     Route: 048
  2. HYDROXYCHLOROQUINE [Concomitant]
     Active Substance: HYDROXYCHLOROQUINE
     Indication: Arthritis
     Dosage: UNK

REACTIONS (7)
  - Product label issue [Unknown]
  - Accidental overdose [Unknown]
  - Neurotoxicity [Recovering/Resolving]
  - Leukoencephalopathy [Recovering/Resolving]
  - Stomatitis [Recovering/Resolving]
  - Rash pustular [Recovering/Resolving]
  - Leukopenia [Recovering/Resolving]
